FAERS Safety Report 18538987 (Version 1)
Quarter: 2020Q4

REPORT INFORMATION
  Report Type: Spontaneous
  Country: DE (occurrence: DE)
  Receive Date: 20201124
  Receipt Date: 20201124
  Transmission Date: 20210114
  Serious: Yes (Death, Hospitalization, Other)
  Sender: FDA-Public Use
  Company Number: DE-TEVA-2020-DE-1845475

PATIENT
  Age: 81 Year
  Sex: Male
  Weight: 90 kg

DRUGS (11)
  1. ASPIRIN. [Concomitant]
     Active Substance: ASPIRIN
  2. PROCORALAN [Concomitant]
     Active Substance: IVABRADINE
  3. FALITHROM [Concomitant]
     Active Substance: PHENPROCOUMON
     Indication: AORTIC VALVE REPLACEMENT
     Dates: start: 2006
  4. TORASEMID [Concomitant]
     Active Substance: TORSEMIDE
  5. SIMVASTATIN. [Concomitant]
     Active Substance: SIMVASTATIN
  6. JANUVIA [Concomitant]
     Active Substance: SITAGLIPTIN PHOSPHATE
  7. AMLODIPIN [Concomitant]
     Active Substance: AMLODIPINE BESYLATE
  8. METOPROLOL. [Concomitant]
     Active Substance: METOPROLOL
  9. OMEPRAZOL [Concomitant]
     Active Substance: OMEPRAZOLE
  10. VALSARTAN. [Concomitant]
     Active Substance: VALSARTAN
  11. METFORMIN [Suspect]
     Active Substance: METFORMIN HYDROCHLORIDE
     Indication: TYPE 2 DIABETES MELLITUS
     Dosage: 2000 MILLIGRAM DAILY;
     Route: 048
     Dates: start: 20190101, end: 20200915

REACTIONS (4)
  - Dehydration [Fatal]
  - Diarrhoea [Fatal]
  - Renal failure [Fatal]
  - Lactic acidosis [Fatal]

NARRATIVE: CASE EVENT DATE: 20200915
